FAERS Safety Report 10010542 (Version 5)
Quarter: 2014Q2

REPORT INFORMATION
  Report Type: Spontaneous
  Country: BR (occurrence: BR)
  Receive Date: 20140314
  Receipt Date: 20140423
  Transmission Date: 20141212
  Serious: Yes (Other)
  Sender: FDA-Public Use
  Company Number: BR-AMGEN-BRASP2014017760

PATIENT
  Age: 50 Year
  Sex: Female
  Weight: 79 kg

DRUGS (1)
  1. ENBREL [Suspect]
     Indication: PSORIATIC ARTHROPATHY
     Dosage: 50 MG, ONCE WEEKLY (ON SATURDAY MORNING)
     Route: 058
     Dates: start: 2013

REACTIONS (11)
  - Headache [Recovered/Resolved]
  - Fluid retention [Unknown]
  - Weight increased [Unknown]
  - Product quality issue [Unknown]
  - Nausea [Unknown]
  - Abdominal pain [Unknown]
  - Pain [Unknown]
  - Oedema peripheral [Unknown]
  - Pollakiuria [Unknown]
  - Feeling abnormal [Unknown]
  - Injection site pain [Unknown]
